FAERS Safety Report 25345884 (Version 1)
Quarter: 2025Q2

REPORT INFORMATION
  Report Type: Spontaneous
  Country: US (occurrence: US)
  Receive Date: 20250522
  Receipt Date: 20250522
  Transmission Date: 20250717
  Serious: Yes (Hospitalization)
  Sender: BRISTOL-MYERS SQUIBB COMPANY
  Company Number: US-BRISTOL-MYERS SQUIBB COMPANY-2025-071211

PATIENT
  Age: 57 Year
  Sex: Female

DRUGS (4)
  1. THALOMID [Suspect]
     Active Substance: THALIDOMIDE
     Indication: Breast cancer female
     Route: 048
     Dates: start: 202412
  2. STERILE WATER [Concomitant]
     Active Substance: WATER
     Indication: Product used for unknown indication
  3. DEXTROSE [Concomitant]
     Active Substance: DEXTROSE MONOHYDRATE
     Indication: Product used for unknown indication
  4. LAPATINIB [Concomitant]
     Active Substance: LAPATINIB
     Indication: Product used for unknown indication

REACTIONS (3)
  - Dizziness [Unknown]
  - Nausea [Unknown]
  - Off label use [Unknown]
